FAERS Safety Report 21757990 (Version 1)
Quarter: 2022Q4

REPORT INFORMATION
  Report Type: Spontaneous
  Country: DE (occurrence: DE)
  Receive Date: 20221221
  Receipt Date: 20221221
  Transmission Date: 20230113
  Serious: Yes (Hospitalization)
  Sender: FDA-Public Use
  Company Number: DE-ZAMBON-202203605DEU

PATIENT
  Age: 78 Year
  Sex: Male

DRUGS (3)
  1. XADAGO [Suspect]
     Active Substance: SAFINAMIDE MESYLATE
     Indication: Parkinson^s disease
     Dosage: NOT PROVIDED
  2. LEVODOPA [Concomitant]
     Active Substance: LEVODOPA
     Dosage: NOT PROVIDED
  3. AKINETON [Concomitant]
     Active Substance: BIPERIDEN HYDROCHLORIDE
     Dosage: NOT PROVIDED

REACTIONS (2)
  - Disorientation [Recovering/Resolving]
  - Hallucination [Recovering/Resolving]
